FAERS Safety Report 8241669-3 (Version None)
Quarter: 2012Q1

REPORT INFORMATION
  Report Type: 
  Country: None (occurrence: None)
  Receive Date: 20120328
  Receipt Date: 20120323
  Transmission Date: 20120608
  Serious: Yes (Other)
  Sender: FDA-Public Use
  Company Number: GB-ABBOTT-12P-167-0916259-00

PATIENT
  Sex: Female

DRUGS (1)
  1. HUMIRA [Suspect]
     Indication: RHEUMATOID ARTHRITIS
     Route: 058
     Dates: start: 20120307

REACTIONS (5)
  - SOMNOLENCE [None]
  - MALAISE [None]
  - HEADACHE [None]
  - NEUTROPENIA [None]
  - OEDEMA PERIPHERAL [None]
